FAERS Safety Report 21846731 (Version 1)
Quarter: 2023Q1

REPORT INFORMATION
  Report Type: Spontaneous
  Country: US (occurrence: US)
  Receive Date: 20230111
  Receipt Date: 20230111
  Transmission Date: 20230418
  Serious: No
  Sender: FDA-Public Use
  Company Number: US-AMRYT PHARMACEUTICALS DAC-AEGR006059

PATIENT

DRUGS (1)
  1. MYCAPSSA [Suspect]
     Active Substance: OCTREOTIDE
     Indication: Acromegaly
     Dosage: UNK

REACTIONS (2)
  - Dehydration [Recovered/Resolved]
  - Gastrointestinal disorder [Recovered/Resolved]
